FAERS Safety Report 20434331 (Version 2)
Quarter: 2022Q1

REPORT INFORMATION
  Report Type: Spontaneous
  Country: US (occurrence: US)
  Receive Date: 20220206
  Receipt Date: 20220207
  Transmission Date: 20220424
  Serious: No
  Sender: FDA-Public Use
  Company Number: US-NOVARTISTESTPH-NVSC2022US023509

PATIENT
  Age: 66 Year
  Sex: Male
  Weight: 96.16 kg

DRUGS (1)
  1. ENTRESTO [Suspect]
     Active Substance: SACUBITRIL\VALSARTAN
     Indication: Ejection fraction
     Dosage: 50 MG, BID (24/26 MG 1/2 TABLET)
     Route: 048
     Dates: start: 20220128, end: 20220201

REACTIONS (8)
  - Chest discomfort [Recovered/Resolved]
  - Malaise [Recovered/Resolved]
  - Heart rate irregular [Recovered/Resolved]
  - Mood altered [Recovered/Resolved]
  - Erythema [Recovered/Resolved]
  - Ocular hyperaemia [Recovered/Resolved]
  - Wrong technique in product usage process [Unknown]
  - Product use in unapproved indication [Unknown]

NARRATIVE: CASE EVENT DATE: 20220129
